FAERS Safety Report 8984496 (Version 1)
Quarter: 2012Q4

REPORT INFORMATION
  Report Type: 
  Country: US (occurrence: US)
  Receive Date: 20121226
  Receipt Date: 20121226
  Transmission Date: 20130627
  Serious: No
  Sender: FDA-Public Use
  Company Number: US-ASTRAZENECA-2012SE94662

PATIENT
  Age: 55 Year
  Sex: Female

DRUGS (11)
  1. NEXIUM [Suspect]
     Route: 048
     Dates: start: 20051104
  2. ALPRAZOLAM [Concomitant]
     Dates: start: 20050224
  3. ZOLOFT [Concomitant]
     Dates: start: 20050531
  4. RANITIDINE HCL [Concomitant]
     Dates: start: 20050628
  5. PROGESTERONE [Concomitant]
     Dates: start: 20050714
  6. ESTRIOL [Concomitant]
     Dates: start: 20050714
  7. LUNESTA [Concomitant]
     Dates: start: 20050925
  8. LORAZEPAM [Concomitant]
     Dates: start: 20051103
  9. PAXIL [Concomitant]
     Dates: start: 20110612
  10. LYRICA [Concomitant]
     Dates: start: 20110612
  11. MS CONTIN [Concomitant]
     Indication: BACK PAIN

REACTIONS (2)
  - Ankle fracture [Unknown]
  - Fall [Unknown]
